FAERS Safety Report 4320418-5 (Version None)
Quarter: 2004Q1

REPORT INFORMATION
  Report Type: 
  Country: None (occurrence: None)
  Receive Date: 20040319
  Receipt Date: 20040319
  Transmission Date: 20041129
  Serious: Yes (Other)
  Sender: FDA-Public Use
  Company Number: None

PATIENT
  Age: 55 Year
  Sex: Female
  Weight: 86.637 kg

DRUGS (9)
  1. ETHYOL [Suspect]
     Indication: CHEMOTHERAPY
     Dosage: 500 MG SQ
     Route: 058
     Dates: start: 20040226, end: 20040227
  2. ETHYOL [Suspect]
     Indication: CHEMOTHERAPY
     Dosage: 500 MG SQ
     Route: 058
     Dates: start: 20040301, end: 20040305
  3. ETHYOL [Suspect]
     Indication: CHEMOTHERAPY
     Dosage: 500 MG SQ
     Route: 058
     Dates: start: 20040308, end: 20040318
  4. CARBOPLATIN [Concomitant]
  5. TAXOL [Concomitant]
  6. PHENERGAN [Concomitant]
  7. M.V.I. [Concomitant]
  8. LEXAPRO [Concomitant]
  9. ZOCOR [Concomitant]

REACTIONS (2)
  - FLUSHING [None]
  - VOMITING [None]
